FAERS Safety Report 5218695-1 (Version None)
Quarter: 2007Q1

REPORT INFORMATION
  Report Type: 
  Country: None (occurrence: None)
  Receive Date: 20070122
  Receipt Date: 20070108
  Transmission Date: 20070707
  Serious: Yes (Other)
  Sender: FDA-Public Use
  Company Number: 26118

PATIENT
  Age: 76 Year
  Sex: Female
  Weight: 86.1834 kg

DRUGS (9)
  1. NIASPAN [Suspect]
     Indication: BLOOD CHOLESTEROL INCREASED
     Dosage: 500 MG QHS PO
     Route: 048
     Dates: start: 20061122
  2. ZETIA [Concomitant]
  3. WELCHOL [Concomitant]
  4. DAYPRO [Concomitant]
  5. ENTERIC-COATED BABY ASPIRIN [Concomitant]
  6. NEXIUM [Concomitant]
  7. LASIX [Concomitant]
  8. POTASSIUM ACETATE [Concomitant]
  9. TYLENOL [Concomitant]

REACTIONS (2)
  - FLUSHING [None]
  - PARAESTHESIA [None]
